FAERS Safety Report 6260029-8 (Version None)
Quarter: 2009Q3

REPORT INFORMATION
  Report Type: 
  Country: None (occurrence: None)
  Receive Date: 20090708
  Receipt Date: 20090626
  Transmission Date: 20100115
  Serious: Yes (Other)
  Sender: FDA-Public Use
  Company Number: US-ELI_LILLY_AND_COMPANY-US200906006761

PATIENT
  Age: 10 Year
  Sex: Male

DRUGS (4)
  1. ZYPREXA [Suspect]
     Indication: ATTENTION DEFICIT/HYPERACTIVITY DISORDER
     Dosage: 5 MG, UNK
     Dates: start: 20090601
  2. SEROQUEL [Concomitant]
     Dosage: UNK, UNK
     Dates: end: 20090601
  3. CONCERTA [Concomitant]
  4. DEPAKOTE [Concomitant]

REACTIONS (5)
  - CHROMATURIA [None]
  - HAEMATURIA [None]
  - NEPHROLITHIASIS [None]
  - OFF LABEL USE [None]
  - URINARY BLADDER HAEMORRHAGE [None]
